FAERS Safety Report 7665270-5 (Version None)
Quarter: 2011Q3

REPORT INFORMATION
  Report Type: 
  Country: None (occurrence: None)
  Receive Date: 20110806
  Receipt Date: 20110517
  Transmission Date: 20111222
  Serious: No
  Sender: FDA-Public Use
  Company Number: US-ABBOTT-11P-163-0726788-00

PATIENT
  Sex: Female
  Weight: 45.4 kg

DRUGS (6)
  1. PROZAC [Concomitant]
     Indication: DEPRESSION
  2. NIASPAN [Suspect]
     Indication: BLOOD CHOLESTEROL INCREASED
     Dates: start: 20110301
  3. PLAVIX [Concomitant]
     Indication: ANTICOAGULANT THERAPY
  4. PRAVACHOL [Concomitant]
     Indication: BLOOD CHOLESTEROL INCREASED
  5. BACOLPFEN [Concomitant]
     Indication: MUSCLE SPASTICITY
  6. KEPRA [Concomitant]
     Indication: CONVULSION

REACTIONS (2)
  - SCAB [None]
  - PRURITUS [None]
